FAERS Safety Report 19649671 (Version 3)
Quarter: 2021Q3

REPORT INFORMATION
  Report Type: Spontaneous
  Country: US (occurrence: US)
  Receive Date: 20210802
  Receipt Date: 20210922
  Transmission Date: 20211014
  Serious: No
  Sender: FDA-Public Use
  Company Number: US-ASTRAZENECA-2021A620317

PATIENT
  Age: 32603 Day
  Sex: Female
  Weight: 72.6 kg

DRUGS (1)
  1. SYMBICORT [Suspect]
     Active Substance: BUDESONIDE\FORMOTEROL FUMARATE DIHYDRATE
     Indication: RESPIRATION ABNORMAL
     Dosage: 160/4.5??G/D 120 ORAL INH/ONE PUFF ONCE A DAY
     Route: 055
     Dates: end: 202107

REACTIONS (3)
  - Intentional device misuse [Unknown]
  - Taste disorder [Unknown]
  - Wrong technique in device usage process [Unknown]

NARRATIVE: CASE EVENT DATE: 20210708
